FAERS Safety Report 18968492 (Version 1)
Quarter: 2021Q1

REPORT INFORMATION
  Report Type: Spontaneous
  Country: GB (occurrence: GB)
  Receive Date: 20210304
  Receipt Date: 20210304
  Transmission Date: 20210420
  Serious: Yes (Other)
  Sender: FDA-Public Use
  Company Number: GB-009507513-2103GBR001179

PATIENT
  Age: 65 Year
  Sex: Male

DRUGS (6)
  1. OMEPRAZOLE. [Concomitant]
     Active Substance: OMEPRAZOLE
     Dosage: 1 DOSAGE FORMS, 1 IN 1D
     Dates: start: 20200515
  2. FLIXONASE [Concomitant]
     Active Substance: FLUTICASONE PROPIONATE
     Dosage: USE DAILY
     Dates: start: 20200515
  3. LATANOPROST. [Concomitant]
     Active Substance: LATANOPROST
     Dosage: 1 GTT (1 GTT, 1 IN 1D)
     Dates: start: 20200515
  4. BRINZOLAMIDE [Concomitant]
     Active Substance: BRINZOLAMIDE
     Dosage: LEFT EYE (1 GTT, 2 IN 1D)
     Route: 047
     Dates: start: 20200515
  5. DORZOLAMIDE HYDROCHLORIDE. [Suspect]
     Active Substance: DORZOLAMIDE HYDROCHLORIDE
     Dosage: 20 MG/ML (0.2 ML)
     Dates: start: 20210216
  6. TIMOLOL MALEATE. [Suspect]
     Active Substance: TIMOLOL MALEATE
     Dosage: 5 MG/ML (0.2 ML)
     Dates: start: 20210216

REACTIONS (4)
  - Eye inflammation [Recovering/Resolving]
  - Periorbital swelling [Unknown]
  - Vision blurred [Unknown]
  - Eye irritation [Recovering/Resolving]

NARRATIVE: CASE EVENT DATE: 20210216
